FAERS Safety Report 9829868 (Version 2)
Quarter: 2014Q1

REPORT INFORMATION
  Report Type: Report from Study
  Country: GB (occurrence: GB)
  Receive Date: 20140120
  Receipt Date: 20140129
  Transmission Date: 20141002
  Serious: Yes (Hospitalization, Other)
  Sender: FDA-Public Use
  Company Number: GB-ROCHE-1335138

PATIENT
  Age: 84 Year
  Sex: Female

DRUGS (6)
  1. RANIBIZUMAB [Suspect]
     Indication: PRODUCT USED FOR UNKNOWN INDICATION
     Route: 050
  2. WARFARIN [Concomitant]
     Route: 065
     Dates: start: 200702
  3. LISINOPRIL [Concomitant]
     Route: 065
     Dates: start: 200702
  4. BISOPROLOL [Concomitant]
     Route: 065
     Dates: start: 20100223
  5. PRAVASTATIN [Concomitant]
     Route: 065
     Dates: start: 201001
  6. ADCAL-D3 [Concomitant]

REACTIONS (9)
  - Dyspnoea [Recovered/Resolved]
  - Tricuspid valve incompetence [Recovering/Resolving]
  - Mitral valve incompetence [Recovering/Resolving]
  - Venous pressure jugular increased [Recovering/Resolving]
  - Oedema peripheral [Recovering/Resolving]
  - Cardiomegaly [Recovering/Resolving]
  - Left atrial dilatation [Recovered/Resolved]
  - Pleural effusion [Recovering/Resolving]
  - Pulmonary arterial pressure decreased [Recovered/Resolved]
